FAERS Safety Report 9390952 (Version 2)
Quarter: 2013Q3

REPORT INFORMATION
  Report Type: Spontaneous
  Country: JP (occurrence: JP)
  Receive Date: 20130709
  Receipt Date: 20130806
  Transmission Date: 20140515
  Serious: No
  Sender: FDA-Public Use
  Company Number: JP-JNJFOC-20130705255

PATIENT
  Age: 64 Year
  Sex: 0

DRUGS (3)
  1. DUROTEP MT [Suspect]
     Indication: CANCER PAIN
     Route: 062
     Dates: start: 20130706, end: 20130711
  2. DUROTEP MT [Suspect]
     Indication: CANCER PAIN
     Route: 062
     Dates: start: 20130702, end: 20130705
  3. ANPEC [Concomitant]
     Indication: CANCER PAIN
     Route: 054
     Dates: start: 20130709

REACTIONS (1)
  - Wrong technique in drug usage process [Unknown]
